FAERS Safety Report 7726052-9 (Version None)
Quarter: 2011Q3

REPORT INFORMATION
  Report Type: 
  Country: None (occurrence: None)
  Receive Date: 20110902
  Receipt Date: 20110829
  Transmission Date: 20111222
  Serious: Yes (Other)
  Sender: FDA-Public Use
  Company Number: FR-ROCHE-799559

PATIENT
  Age: 60 Year
  Sex: Female

DRUGS (18)
  1. MOTILIUM [Concomitant]
  2. PREDNISOLONE [Concomitant]
  3. EMLA [Concomitant]
  4. OMEPRAZOLE [Concomitant]
  5. DEXERYL [Concomitant]
  6. BIAFINE [Concomitant]
  7. AVASTIN [Suspect]
     Route: 042
     Dates: start: 20110725, end: 20110725
  8. ATROPINE [Concomitant]
  9. ZOFRAN [Concomitant]
  10. EMEND [Concomitant]
  11. IRINOTECAN HCL [Concomitant]
  12. LEUCOVORIN CALCIUM [Concomitant]
  13. SOLU-MEDROL [Concomitant]
  14. PHOSPHALUGEL [Concomitant]
  15. BISEPTINE [Concomitant]
  16. FLUOROURACIL [Concomitant]
  17. DONORMYL [Concomitant]
  18. TOLEXINE [Concomitant]

REACTIONS (1)
  - METRORRHAGIA [None]
